FAERS Safety Report 5249784-3 (Version None)
Quarter: 2007Q1

REPORT INFORMATION
  Report Type: 
  Country: None (occurrence: None)
  Receive Date: 20070228
  Receipt Date: 20070103
  Transmission Date: 20070707
  Serious: No
  Sender: FDA-Public Use
  Company Number: US-GLAXOSMITHKLINE-A0631322A

PATIENT
  Age: 49 Year
  Sex: Female
  Weight: 42.7 kg

DRUGS (5)
  1. IMITREX [Suspect]
     Indication: MIGRAINE
     Route: 058
     Dates: start: 20030101
  2. IMITREX [Suspect]
     Indication: HEADACHE
     Route: 048
  3. IMITREX [Suspect]
     Route: 045
  4. PERCOCET [Concomitant]
     Dates: start: 20030101, end: 20061130
  5. OXYCODONE HCL [Concomitant]
     Dates: start: 20061130

REACTIONS (9)
  - ABDOMINAL PAIN UPPER [None]
  - DRUG ADMINISTRATION ERROR [None]
  - DRUG INEFFECTIVE [None]
  - ENTEROCLYSIS [None]
  - ERYTHEMA [None]
  - GASTRITIS [None]
  - GASTROINTESTINAL OEDEMA [None]
  - GASTROINTESTINAL ULCER [None]
  - SMALL INTESTINE ULCER [None]
